FAERS Safety Report 12379359 (Version 1)
Quarter: 2016Q2

REPORT INFORMATION
  Report Type: Spontaneous
  Country: US (occurrence: US)
  Receive Date: 20160517
  Receipt Date: 20160517
  Transmission Date: 20160815
  Serious: No
  Sender: FDA-Public Use
  Company Number: US-RELYPSA-RLY2016000281

PATIENT

DRUGS (12)
  1. VELTASSA [Suspect]
     Active Substance: PATIROMER
     Indication: HYPERKALAEMIA
     Dosage: 8.4 G, QD
     Route: 048
     Dates: start: 20160330
  2. FISH OIL [Concomitant]
     Active Substance: FISH OIL
  3. HYDRAZINE SULFATE [Concomitant]
     Active Substance: HYDRAZINE SULFATE
  4. KAYEXALATE [Concomitant]
     Active Substance: SODIUM POLYSTYRENE SULFONATE
  5. PLAVIX [Concomitant]
     Active Substance: CLOPIDOGREL BISULFATE
  6. TIMOLOL MALEATE. [Concomitant]
     Active Substance: TIMOLOL MALEATE
  7. FERROUS SULFATE. [Concomitant]
     Active Substance: FERROUS SULFATE
  8. MAGNESIUM [Concomitant]
     Active Substance: MAGNESIUM
  9. CARDURA [Concomitant]
     Active Substance: DOXAZOSIN MESYLATE
  10. COLCRYS [Concomitant]
     Active Substance: COLCHICINE
     Dosage: UNK
  11. LABETALOL HCL [Concomitant]
     Active Substance: LABETALOL HYDROCHLORIDE
  12. ALBUTEROL SULFATE. [Concomitant]
     Active Substance: ALBUTEROL SULFATE

REACTIONS (7)
  - Chest discomfort [None]
  - Constipation [Unknown]
  - Abdominal discomfort [None]
  - Pneumonia [None]
  - Muscle spasms [None]
  - Drug ineffective [None]
  - Peripheral swelling [Unknown]
